FAERS Safety Report 22032239 (Version 1)
Quarter: 2023Q1

REPORT INFORMATION
  Report Type: Spontaneous
  Country: UA (occurrence: None)
  Receive Date: 20230224
  Receipt Date: 20230224
  Transmission Date: 20230418
  Serious: Yes (Other)
  Sender: FDA-Public Use
  Company Number: 2023A030183

PATIENT
  Age: 70 Year
  Sex: Female
  Weight: 80 kg

DRUGS (3)
  1. SYMBICORT [Suspect]
     Active Substance: BUDESONIDE\FORMOTEROL FUMARATE DIHYDRATE
     Indication: Chronic obstructive pulmonary disease
     Dosage: FOR TWO INHALATIONS IN THE MORNING AND TWO INHALATIONS IN THE EVENING AND AS REQUIRED
     Route: 055
     Dates: start: 202211
  2. SPIRIVA RESPIMAT [Concomitant]
     Active Substance: TIOTROPIUM BROMIDE
     Dosage: FOR A LONG TIME ON A REGULAR BASIS FOR TWO INHALATIONS A DAY
  3. DEXAMETHASONE [Concomitant]
     Active Substance: DEXAMETHASONE
     Dosage: FOR 3 AMPOULES IV EVERY DAY ARE ALREADY 10 DAYS

REACTIONS (5)
  - Influenza like illness [Unknown]
  - Condition aggravated [Unknown]
  - Sputum discoloured [Unknown]
  - Intentional product use issue [Unknown]
  - Drug ineffective [Recovered/Resolved]
